FAERS Safety Report 14114515 (Version 1)
Quarter: 2017Q4

REPORT INFORMATION
  Report Type: Spontaneous
  Country: US (occurrence: US)
  Receive Date: 20171023
  Receipt Date: 20171023
  Transmission Date: 20180321
  Serious: No
  Sender: FDA-Public Use
  Company Number: US-PFIZER INC-2017454423

PATIENT
  Age: 69 Year
  Sex: Male
  Weight: 77 kg

DRUGS (9)
  1. AMLODIPINE [Concomitant]
     Active Substance: AMLODIPINE BESYLATE
     Indication: BLOOD CHOLESTEROL ABNORMAL
  2. ALLOPURINOL. [Concomitant]
     Active Substance: ALLOPURINOL
  3. VIAGRA [Suspect]
     Active Substance: SILDENAFIL CITRATE
     Dosage: 50 MG, UNK (HALF)
     Route: 048
  4. LISINOPRIL. [Concomitant]
     Active Substance: LISINOPRIL
  5. TRAJENTA [Concomitant]
     Active Substance: LINAGLIPTIN
  6. METOPROLOL TARTRATE. [Concomitant]
     Active Substance: METOPROLOL TARTRATE
  7. VIAGRA [Suspect]
     Active Substance: SILDENAFIL CITRATE
     Dosage: 100 MG, UNK
     Route: 048
  8. LOVASTATIN. [Concomitant]
     Active Substance: LOVASTATIN
  9. LANTUS [Concomitant]
     Active Substance: INSULIN GLARGINE
     Dosage: INJECT THAT EVERY NIGHT

REACTIONS (2)
  - Drug ineffective [Unknown]
  - Intentional product misuse [Unknown]
